FAERS Safety Report 9210700 (Version 2)
Quarter: 2013Q2

REPORT INFORMATION
  Report Type: Spontaneous
  Country: US (occurrence: US)
  Receive Date: 20130404
  Receipt Date: 20130610
  Transmission Date: 20140414
  Serious: Yes (Other)
  Sender: FDA-Public Use
  Company Number: US-GLAXOSMITHKLINE-A1017878A

PATIENT
  Sex: Female

DRUGS (11)
  1. ADVAIR [Suspect]
     Indication: ASTHMA
     Dosage: 1PUFF TWICE PER DAY
     Route: 055
     Dates: start: 2005
  2. METFORMIN [Concomitant]
  3. CALCIUM [Concomitant]
  4. LOVAZA [Concomitant]
  5. LISINOPRIL [Concomitant]
  6. PROTONIX [Concomitant]
  7. ATENOLOL [Concomitant]
  8. QVAR [Concomitant]
  9. CULTURELLE [Concomitant]
  10. PREDNISONE [Concomitant]
  11. REMICADE [Concomitant]

REACTIONS (8)
  - Oesophageal candidiasis [Not Recovered/Not Resolved]
  - Oral candidiasis [Not Recovered/Not Resolved]
  - Ageusia [Unknown]
  - Ill-defined disorder [Not Recovered/Not Resolved]
  - Tongue disorder [Not Recovered/Not Resolved]
  - Glossodynia [Not Recovered/Not Resolved]
  - Sinus disorder [Not Recovered/Not Resolved]
  - Tongue coated [Unknown]
